FAERS Safety Report 8490662-4 (Version None)
Quarter: 2012Q3

REPORT INFORMATION
  Report Type: 
  Country: None (occurrence: None)
  Receive Date: 20120705
  Receipt Date: 20120627
  Transmission Date: 20120928
  Serious: Yes (Death)
  Sender: FDA-Public Use
  Company Number: US-CELGENEUS-163-21880-12061150

PATIENT
  Sex: Female
  Weight: 54.48 kg

DRUGS (9)
  1. REVLIMID [Suspect]
     Indication: MYELODYSPLASTIC SYNDROME
     Dosage: 5 MILLIGRAM
     Route: 048
     Dates: start: 20111111, end: 20120508
  2. AMLODIPINE [Concomitant]
     Dosage: 5 MILLIGRAM
     Route: 065
  3. OXYBUTYNIN [Concomitant]
     Dosage: 10 MILLIGRAM
     Route: 065
  4. LORAZEPAM [Concomitant]
     Dosage: .5 MILLIGRAM
     Route: 065
  5. GABAPENTIN [Concomitant]
     Dosage: 300 MILLIGRAM
     Route: 065
  6. MEGESTROL ACETATE [Concomitant]
     Dosage: 40 MILLIGRAM
     Route: 065
  7. EXJADE [Concomitant]
     Dosage: 500 MILLIGRAM
     Route: 065
  8. NABUMETONE [Concomitant]
     Dosage: 500 MILLIGRAM
     Route: 065
  9. OMEPRAZOLE [Concomitant]
     Dosage: 20 MILLIGRAM
     Route: 065

REACTIONS (1)
  - CEREBROVASCULAR ACCIDENT [None]
